FAERS Safety Report 13275843 (Version 1)
Quarter: 2017Q1

REPORT INFORMATION
  Report Type: Spontaneous
  Country: US (occurrence: US)
  Receive Date: 20170227
  Receipt Date: 20170227
  Transmission Date: 20170428
  Serious: No
  Sender: FDA-Public Use
  Company Number: None

PATIENT
  Age: 57 Year
  Weight: 74.25 kg

DRUGS (5)
  1. MULTIVITAMINS [Concomitant]
     Active Substance: VITAMINS
  2. ESCITALOPRAM [Suspect]
     Active Substance: ESCITALOPRAM OXALATE
     Indication: ANXIETY
     Dosage: ?          QUANTITY:30 TABLET(S);?
     Route: 048
     Dates: start: 20170113, end: 20170120
  3. VITAMIN B [Concomitant]
     Active Substance: VITAMIN B
  4. VITAMIN C [Concomitant]
     Active Substance: ASCORBIC ACID
  5. VITAMIN E [Concomitant]
     Active Substance: .ALPHA.-TOCOPHEROL

REACTIONS (8)
  - Product substitution issue [None]
  - Pain in extremity [None]
  - Gingival bleeding [None]
  - Middle insomnia [None]
  - Abnormal faeces [None]
  - Faeces discoloured [None]
  - Feeling abnormal [None]
  - Contusion [None]

NARRATIVE: CASE EVENT DATE: 20170113
